FAERS Safety Report 15917774 (Version 4)
Quarter: 2021Q2

REPORT INFORMATION
  Report Type: Spontaneous
  Country: US (occurrence: US)
  Receive Date: 20190205
  Receipt Date: 20210415
  Transmission Date: 20210716
  Serious: No
  Sender: FDA-Public Use
  Company Number: US-PFIZER INC-2019052222

PATIENT
  Age: 14 Year
  Sex: Male

DRUGS (3)
  1. GENOTROPIN [Suspect]
     Active Substance: SOMATROPIN
     Indication: ADRENAL INSUFFICIENCY
     Dosage: 0.5 MG, DAILY
  2. GENOTROPIN [Suspect]
     Active Substance: SOMATROPIN
     Indication: DIABETES INSIPIDUS
     Dosage: 0.8 MG, DAILY
     Dates: start: 201801
  3. GENOTROPIN [Suspect]
     Active Substance: SOMATROPIN
     Indication: SEPTO-OPTIC DYSPLASIA
     Dosage: 5 MG, DAILY
     Dates: start: 20180302

REACTIONS (6)
  - Pain in extremity [Unknown]
  - Off label use [Unknown]
  - Intentional product misuse [Unknown]
  - Product prescribing error [Unknown]
  - Weight increased [Unknown]
  - Arthralgia [Not Recovered/Not Resolved]

NARRATIVE: CASE EVENT DATE: 20180302
